FAERS Safety Report 4932188-8 (Version None)
Quarter: 2006Q1

REPORT INFORMATION
  Report Type: 
  Country: None (occurrence: None)
  Receive Date: 20060228
  Receipt Date: 20060217
  Transmission Date: 20060701
  Serious: Yes (Hospitalization, Other)
  Sender: FDA-Public Use
  Company Number: 2006-US-00502

PATIENT
  Age: 64 Year
  Sex: Female

DRUGS (5)
  1. CLOZAPINE [Suspect]
     Indication: SCHIZOAFFECTIVE DISORDER
     Dosage: 200 MG, QD, ORAL
     Route: 048
     Dates: start: 20051201, end: 20060101
  2. QUETIAPINE [Concomitant]
  3. ARIPIPRAZOLE [Concomitant]
  4. FLUPHENAZINE HCL [Concomitant]
  5. BENZTROPINE MESYLATE [Concomitant]

REACTIONS (3)
  - CARDIAC FAILURE CONGESTIVE [None]
  - HEART RATE IRREGULAR [None]
  - TACHYCARDIA [None]
